FAERS Safety Report 5495467-4 (Version None)
Quarter: 2007Q4

REPORT INFORMATION
  Report Type: 
  Country: None (occurrence: None)
  Receive Date: 20071023
  Receipt Date: 20071015
  Transmission Date: 20080405
  Serious: Yes (Hospitalization)
  Sender: FDA-Public Use
  Company Number: S07-USA-05505-01

PATIENT
  Age: 79 Year
  Sex: Male

DRUGS (5)
  1. LEXAPRO [Suspect]
     Dosage: 10 MG QD PO
     Route: 048
     Dates: start: 20070720, end: 20071012
  2. PLAVIX [Concomitant]
  3. IMDUR [Concomitant]
  4. LOPRESSOR [Concomitant]
  5. PROTONIX [Concomitant]

REACTIONS (3)
  - DEHYDRATION [None]
  - DIARRHOEA [None]
  - NAUSEA [None]
